FAERS Safety Report 9928785 (Version 1)
Quarter: 2014Q1

REPORT INFORMATION
  Report Type: Spontaneous
  Country: IT (occurrence: None)
  Receive Date: 20140225
  Receipt Date: 20140225
  Transmission Date: 20141002
  Serious: Yes (Other)
  Sender: FDA-Public Use
  Company Number: 2014MPI00128

PATIENT
  Age: 30 Year
  Sex: Female

DRUGS (1)
  1. ADCETRIS (BRENTUXIMAB VEDOTIN) INJECTION [Suspect]
     Indication: HODGKIN^S DISEASE
     Dosage: QCYCLE
     Route: 042
     Dates: start: 20121016, end: 20121106

REACTIONS (5)
  - Respiratory distress [None]
  - Headache [None]
  - Rash [None]
  - Pruritus generalised [None]
  - Blister [None]
